FAERS Safety Report 18372421 (Version 3)
Quarter: 2021Q4

REPORT INFORMATION
  Report Type: Spontaneous
  Country: US (occurrence: US)
  Receive Date: 20201012
  Receipt Date: 20211124
  Transmission Date: 20220304
  Serious: No
  Sender: FDA-Public Use
  Company Number: US-PFIZER INC-2020383942

PATIENT
  Age: 14 Year
  Sex: Female
  Weight: 36.735 kg

DRUGS (1)
  1. GENOTROPIN [Suspect]
     Active Substance: SOMATROPIN
     Indication: Growth hormone deficiency
     Dosage: 1.7 MG (INJECTED NIGHTLY)
     Dates: start: 2012

REACTIONS (3)
  - Product dose omission issue [Unknown]
  - Device mechanical issue [Unknown]
  - Device breakage [Unknown]

NARRATIVE: CASE EVENT DATE: 20200101
